FAERS Safety Report 9833252 (Version 1)
Quarter: 2014Q1

REPORT INFORMATION
  Report Type: Spontaneous
  Country: US (occurrence: US)
  Receive Date: 20140121
  Receipt Date: 20140121
  Transmission Date: 20141002
  Serious: Yes (Hospitalization)
  Sender: FDA-Public Use
  Company Number: US-B.I. PHARMACEUTICALS,INC./RIDGEFIELD-2014-BI-02215BP

PATIENT
  Age: 69 Year
  Sex: Female
  Weight: 91 kg

DRUGS (3)
  1. MICARDIS [Suspect]
     Indication: HYPERTENSION
     Dosage: 80 MG
     Route: 048
     Dates: start: 2000
  2. ASPIRIN [Concomitant]
     Dosage: 81 MG
     Route: 048
  3. ESTERACE CREAM [Concomitant]
     Route: 061

REACTIONS (3)
  - Myocardial infarction [Recovered/Resolved]
  - Ankle fracture [Recovered/Resolved]
  - Coeliac disease [Not Recovered/Not Resolved]
